FAERS Safety Report 25957701 (Version 2)
Quarter: 2025Q4

REPORT INFORMATION
  Report Type: Spontaneous
  Country: VN (occurrence: VN)
  Receive Date: 20251024
  Receipt Date: 20251217
  Transmission Date: 20260117
  Serious: No
  Sender: ORGANON
  Company Number: VN-ORGANON-O2510VNM001492

PATIENT
  Age: 21 Year
  Sex: Female

DRUGS (1)
  1. ETONOGESTREL [Suspect]
     Active Substance: ETONOGESTREL
     Indication: Contraception
     Dosage: 1 IMPLANT
     Dates: start: 20250914, end: 20251007

REACTIONS (7)
  - Implant site oedema [Unknown]
  - Implant site bruising [Unknown]
  - Implant site swelling [Unknown]
  - Implant site discolouration [Unknown]
  - Pain in extremity [Unknown]
  - Suspected counterfeit product [Unknown]
  - Counterfeit product administered [Unknown]

NARRATIVE: CASE EVENT DATE: 20250901
